FAERS Safety Report 4533118-3 (Version None)
Quarter: 2004Q4

REPORT INFORMATION
  Report Type: 
  Country: None (occurrence: None)
  Receive Date: 20041206
  Receipt Date: 20041014
  Transmission Date: 20050328
  Serious: No
  Sender: FDA-Public Use
  Company Number: USA041081134

PATIENT
  Age: 50 Year
  Sex: Male
  Weight: 91 kg

DRUGS (2)
  1. CYMBALTA (DULOXETINE HYDROCHLORIDE) [Suspect]
     Indication: PAIN IN EXTREMITY
     Dosage: 60 MG
     Dates: start: 20040925, end: 20041007
  2. PERCOCET [Concomitant]

REACTIONS (3)
  - DIARRHOEA [None]
  - FATIGUE [None]
  - FEELING ABNORMAL [None]
